FAERS Safety Report 10643185 (Version 1)
Quarter: 2014Q4

REPORT INFORMATION
  Report Type: Spontaneous
  Country: US (occurrence: None)
  Receive Date: 20141209
  Receipt Date: 20141209
  Transmission Date: 20150529
  Serious: Yes (Hospitalization)
  Sender: FDA-Public Use
  Company Number: None

PATIENT
  Age: 66 Year
  Sex: Male
  Weight: 126 kg

DRUGS (2)
  1. SLO-NIACIN [Suspect]
     Active Substance: DIETARY SUPPLEMENT
     Indication: HYPERLIPIDAEMIA
     Dosage: AT BEDTIME
     Route: 048
     Dates: start: 20091214, end: 20141028
  2. PENICILLIN [Suspect]
     Active Substance: PENICILLIN
     Indication: INFECTION
     Route: 048
     Dates: start: 20140924, end: 20141019

REACTIONS (5)
  - Angioedema [None]
  - Respiratory distress [None]
  - Pruritus [None]
  - Hypersensitivity vasculitis [None]
  - Urticaria [None]

NARRATIVE: CASE EVENT DATE: 20141025
